FAERS Safety Report 4430377-2 (Version None)
Quarter: 2004Q3

REPORT INFORMATION
  Report Type: 
  Country: None (occurrence: None)
  Receive Date: 20040820
  Receipt Date: 20040811
  Transmission Date: 20050211
  Serious: Yes (Congenital Anomaly, Other)
  Sender: FDA-Public Use
  Company Number: US-MERCK-0408USA01072B1

PATIENT
  Sex: Male
  Weight: 2 kg

DRUGS (2)
  1. CUPRIMINE [Suspect]
     Indication: HEPATO-LENTICULAR DEGENERATION
  2. CUPRIMINE [Suspect]

REACTIONS (34)
  - ABNORMAL PALMAR/PLANTAR CREASES [None]
  - ACQUIRED PYLORIC STENOSIS [None]
  - ANOMALY OF EXTERNAL EAR CONGENITAL [None]
  - ATELECTASIS [None]
  - BLINDNESS CORTICAL [None]
  - BLOOD COPPER DECREASED [None]
  - BRAIN STEM AUDITORY EVOKED RESPONSE ABNORMAL [None]
  - BRONCHOPULMONARY DYSPLASIA [None]
  - CAMPTODACTYLY CONGENITAL [None]
  - CEREBRAL ATROPHY [None]
  - COMPLEX PARTIAL SEIZURES [None]
  - CONGENITAL ANOMALY [None]
  - CONGENITAL CENTRAL NERVOUS SYSTEM ANOMALY [None]
  - CONGENITAL CUTIS LAXA [None]
  - CONGENITAL DEFORMITY OF CLAVICLE [None]
  - CONGENITAL MULTIPLEX ARTHROGRYPOSIS [None]
  - CRYPTORCHISM [None]
  - DEFORMITY THORAX [None]
  - DEVELOPMENTAL DELAY [None]
  - DRUG EXPOSURE DURING PREGNANCY [None]
  - GASTROOESOPHAGEAL REFLUX DISEASE [None]
  - HUMERUS FRACTURE [None]
  - HYPOVENTILATION [None]
  - HYPOVENTILATION NEONATAL [None]
  - INGUINAL HERNIA [None]
  - JOINT CONTRACTURE [None]
  - LUNG INFECTION [None]
  - MICROGNATHIA [None]
  - OLIGOHYDRAMNIOS [None]
  - SINGLE UMBILICAL ARTERY [None]
  - SMALL FOR DATES BABY [None]
  - SUBDURAL HYGROMA [None]
  - TALIPES [None]
  - UMBILICAL CORD VASCULAR DISORDER [None]
